FAERS Safety Report 5816270-9 (Version None)
Quarter: 2008Q3

REPORT INFORMATION
  Report Type: 
  Country: None (occurrence: None)
  Receive Date: 20080721
  Receipt Date: 20080715
  Transmission Date: 20090109
  Serious: Yes (Hospitalization, Other)
  Sender: FDA-Public Use
  Company Number: US-BRISTOL-MYERS SQUIBB COMPANY-14263057

PATIENT
  Age: 71 Year
  Sex: Female
  Weight: 76 kg

DRUGS (5)
  1. ERBITUX [Suspect]
     Indication: COLON CANCER
     Dosage: START DATE:20MAY08;CYCLE1:400MG/M2 OVER 2H(D1),250MG/M2 OVER 1H(D8); CYCLE2-12:250MG/M2 - 1H(D1+8)
     Route: 042
     Dates: start: 20080610, end: 20080610
  2. FLUOROURACIL [Suspect]
     Indication: COLON CANCER
     Dosage: START DATE:20MAY08;CYCLE 1,2-12(2 WEEKS):400MG/M2 IV PUSH-DAY 1 FOLLOWED BY 2400MG/M2 (46-48HRS).
     Route: 040
     Dates: start: 20080605, end: 20080605
  3. LEUCOVORIN CALCIUM [Suspect]
     Indication: COLON CANCER
     Dosage: START DATE:20MAY08; CYCLE1,2-12(2WEEKS):400MG/M2 IV OVER 120MIN ON DAY 1.
     Route: 042
     Dates: start: 20080603, end: 20080603
  4. ELOXATIN [Suspect]
     Indication: COLON CANCER
     Dosage: START DATE: 20MAY08; CYCLE 1,2-12(2WEEKS): 85MG/M2 IV OVER 120 MIN ON DAY 1.
     Route: 042
     Dates: start: 20080603, end: 20080603
  5. LOPERAMIDE HCL [Suspect]
     Indication: COLON CANCER
     Dates: start: 20080612, end: 20080612

REACTIONS (4)
  - DIARRHOEA [None]
  - HYPOKALAEMIA [None]
  - HYPONATRAEMIA [None]
  - NEUTROPHIL COUNT DECREASED [None]
